FAERS Safety Report 9354072 (Version 2)
Quarter: 2013Q3

REPORT INFORMATION
  Report Type: Spontaneous
  Country: FR (occurrence: FR)
  Receive Date: 20130618
  Receipt Date: 20130709
  Transmission Date: 20140515
  Serious: Yes (Hospitalization)
  Sender: FDA-Public Use
  Company Number: FR-TEVA-412913ISR

PATIENT
  Age: 77 Year
  Sex: Male

DRUGS (10)
  1. FUROSEMIDE TEVA 40 MG, SCORED TABLET [Suspect]
     Indication: CARDIAC FAILURE
     Dosage: 40 MILLIGRAM DAILY;
     Route: 048
     Dates: end: 20130609
  2. FUROSEMIDE TEVA 40 MG, SCORED TABLET [Suspect]
     Indication: AORTIC VALVE STENOSIS
  3. LANTUS [Concomitant]
     Indication: TYPE 2 DIABETES MELLITUS
  4. NOVORAPID [Concomitant]
     Indication: TYPE 2 DIABETES MELLITUS
  5. PREVISCAN [Concomitant]
  6. LIPANTHYL [Concomitant]
  7. CORDARONE [Concomitant]
     Indication: ARRHYTHMIA
  8. TRAMADOL [Concomitant]
     Indication: PAIN
  9. DIFFU-K [Concomitant]
  10. SIFROL [Concomitant]

REACTIONS (4)
  - Cardiac failure [Recovered/Resolved]
  - Dyspnoea [Recovered/Resolved]
  - Somnolence [Recovered/Resolved]
  - Oedema peripheral [Recovered/Resolved]
